FAERS Safety Report 22067047 (Version 1)
Quarter: 2023Q1

REPORT INFORMATION
  Report Type: Spontaneous
  Country: DE (occurrence: DE)
  Receive Date: 20230306
  Receipt Date: 20230306
  Transmission Date: 20230417
  Serious: Yes (Other)
  Sender: FDA-Public Use
  Company Number: DE-NOVOPROD-1030500

PATIENT
  Sex: Female

DRUGS (1)
  1. INSULIN ASPART [Suspect]
     Active Substance: INSULIN ASPART
     Indication: Product used for unknown indication
     Dosage: UNK

REACTIONS (7)
  - Neoplasm malignant [Unknown]
  - Condition aggravated [Unknown]
  - Hypertension [Unknown]
  - Pain [Unknown]
  - Fall [Unknown]
  - Neuropathy peripheral [Unknown]
  - Blood glucose increased [Unknown]
